FAERS Safety Report 9240166 (Version 1)
Quarter: 2013Q1

REPORT INFORMATION
  Report Type: Spontaneous
  Country: US (occurrence: None)
  Receive Date: 20121119
  Receipt Date: 20121119
  Transmission Date: 20140127
  Serious: Yes (Other)
  Sender: FDA-Public Use
  Company Number: 064618

PATIENT
  Sex: 0

DRUGS (1)
  1. LACOSAMIDE [Suspect]

REACTIONS (4)
  - Convulsion [None]
  - Sinus headache [None]
  - Influenza [None]
  - Dark circles under eyes [None]
